FAERS Safety Report 7134211-1 (Version None)
Quarter: 2010Q4

REPORT INFORMATION
  Report Type: 
  Country: None (occurrence: None)
  Receive Date: 20101117
  Receipt Date: 20101102
  Transmission Date: 20110411
  Serious: Yes (Death)
  Sender: FDA-Public Use
  Company Number: 2010P1001654

PATIENT
  Age: 9 Year
  Sex: Female

DRUGS (5)
  1. AMMONAPS POWDER [Suspect]
     Indication: ORNITHINE TRANSCARBAMOYLASE DEFICIENCY
     Dosage: 11 G; QD; PO
     Route: 048
     Dates: start: 20090901, end: 20100801
  2. NATRIUMBENZOAT (SODIUM BENZOATE) [Suspect]
     Indication: ORNITHINE TRANSCARBAMOYLASE DEFICIENCY
     Dosage: 6.6 G; QD; PO
     Route: 048
     Dates: start: 20090901, end: 20100801
  3. CITRULLIN (CITRULLIN) [Concomitant]
  4. ARGININ (ARGININ) [Concomitant]
  5. ACETYLCARNITIN (ACETYLCARNITIN) [Concomitant]

REACTIONS (7)
  - BRAIN COMPRESSION [None]
  - BRAIN OEDEMA [None]
  - CIRCULATORY COLLAPSE [None]
  - COMA [None]
  - DIABETES INSIPIDUS [None]
  - HYPERAMMONAEMIA [None]
  - RESPIRATORY FAILURE [None]
